FAERS Safety Report 8773957 (Version 2)
Quarter: 2015Q1

REPORT INFORMATION
  Report Type: Spontaneous
  Country: US (occurrence: US)
  Receive Date: 20120830
  Receipt Date: 20150325
  Transmission Date: 20150721
  Serious: Yes (Death, Hospitalization, Congenital Anomaly, Other)
  Sender: FDA-Public Use
  Company Number: US-ELI_LILLY_AND_COMPANY-US201208008835

PATIENT
  Sex: Female

DRUGS (1)
  1. PROZAC [Suspect]
     Active Substance: FLUOXETINE HYDROCHLORIDE
     Indication: DEPRESSION
     Dosage: 20 MG, QD
     Route: 064

REACTIONS (11)
  - Encephalocele [Not Recovered/Not Resolved]
  - Developmental delay [Unknown]
  - Limb deformity [Unknown]
  - Joint dislocation [Unknown]
  - IIIrd nerve paralysis [Unknown]
  - Scoliosis [Unknown]
  - Blindness cortical [Unknown]
  - Hearing impaired [Unknown]
  - Foetal exposure during pregnancy [Recovered/Resolved]
  - Bronchopneumonia [Fatal]
  - Infantile spasms [Unknown]
